FAERS Safety Report 12657452 (Version 1)
Quarter: 2016Q3

REPORT INFORMATION
  Report Type: Spontaneous
  Country: US (occurrence: US)
  Receive Date: 20160816
  Receipt Date: 20160816
  Transmission Date: 20161109
  Serious: No
  Sender: FDA-Public Use
  Company Number: US-ENDO PHARMACEUTICALS INC.-2015-002299

PATIENT
  Age: 52 Year
  Sex: Female
  Weight: 72.64 kg

DRUGS (4)
  1. STEROID INJECTIONS [Concomitant]
     Active Substance: UNSPECIFIED INGREDIENT
     Indication: NECK PAIN
  2. STEROID INJECTIONS [Concomitant]
     Active Substance: UNSPECIFIED INGREDIENT
     Indication: BACK PAIN
  3. SUMAVEL DOSEPRO [Suspect]
     Active Substance: SUMATRIPTAN SUCCINATE
     Indication: MIGRAINE WITHOUT AURA
     Dosage: INJECT 6 MG AT ONSET OF MIGRAINE; NO MORE THAN 12 MG IN 24 HOURS
     Route: 058
     Dates: start: 20150729, end: 20150729
  4. STEROID INJECTIONS [Concomitant]
     Active Substance: UNSPECIFIED INGREDIENT
     Indication: SPINAL COLUMN STENOSIS

REACTIONS (8)
  - Injection site mass [Recovered/Resolved]
  - Injection site bruising [Recovering/Resolving]
  - Headache [Recovering/Resolving]
  - Underdose [Recovered/Resolved]
  - Drug ineffective [Recovering/Resolving]
  - Injection site haemorrhage [Recovered/Resolved]
  - Drug administration error [Recovered/Resolved]
  - Accidental exposure to product [Recovered/Resolved]

NARRATIVE: CASE EVENT DATE: 20150729
